FAERS Safety Report 7385918-2 (Version None)
Quarter: 2011Q1

REPORT INFORMATION
  Report Type: 
  Country: None (occurrence: None)
  Receive Date: 20110331
  Receipt Date: 20110318
  Transmission Date: 20110831
  Serious: Yes (Other)
  Sender: FDA-Public Use
  Company Number: BR-RANBAXY-2011R1-43325

PATIENT
  Age: 7 Year
  Sex: Female

DRUGS (1)
  1. PHENOBARBITAL SRT [Suspect]
     Indication: EPILEPSY
     Dosage: UNK
     Route: 065

REACTIONS (1)
  - FIXED ERUPTION [None]
